FAERS Safety Report 5359615-9 (Version None)
Quarter: 2007Q2

REPORT INFORMATION
  Report Type: 
  Country: None (occurrence: None)
  Receive Date: 20070615
  Receipt Date: 20070601
  Transmission Date: 20071010
  Serious: Yes (Other)
  Sender: FDA-Public Use
  Company Number: US-SHR-US-2007-006372

PATIENT
  Age: 64 Year
  Sex: Male
  Weight: 95 kg

DRUGS (32)
  1. MAGNEVIST [Suspect]
     Indication: ANGIOGRAM
     Dosage: UNK, 1 DOSE
     Route: 042
     Dates: start: 20050204, end: 20050204
  2. MAGNEVIST [Suspect]
     Dosage: UNK, 1 DOSE
     Route: 042
     Dates: start: 19990701, end: 19990701
  3. DOBUTAMINE HCL [Concomitant]
     Indication: CARDIAC STRESS TEST
     Dosage: UNK, 1 DOSE
     Dates: start: 20050101, end: 20050101
  4. DEFINITY [Concomitant]
     Dosage: 2 ML, 1 DOSE
     Dates: start: 20060309, end: 20060309
  5. ULTRAVIST 300 [Concomitant]
     Indication: FISTULOGRAM
     Dosage: UNK, 1 DOSE
     Dates: start: 20070328, end: 20070328
  6. ISOVUE-128 [Concomitant]
     Indication: FISTULOGRAM
     Dosage: UNK, 1 DOSE
     Dates: start: 20070328, end: 20070328
  7. ISOVUE-128 [Concomitant]
     Dosage: 30 ML, 1 DOSE
     Dates: start: 20070330, end: 20070330
  8. LIPITOR [Concomitant]
     Dosage: 20 MG, 1X/DAY
  9. COLACE [Concomitant]
     Dosage: 100 MG, 3X/DAY
  10. FOLIC ACID [Concomitant]
     Dosage: 1 MG, 1X/DAY
  11. NEPHROCAPS [Concomitant]
     Dosage: 1 CAP(S), 1X/DAY
  12. NPH INSULIN [Concomitant]
     Dosage: SLIDING SCALE
  13. REGULAR INSULIN [Concomitant]
     Dosage: SLIDING SCALE
  14. NADOLOL [Concomitant]
     Dosage: 10 MG, 2X/DAY
  15. PROTONIX [Concomitant]
     Dosage: 40 MG, 2X/DAY
     Route: 048
  16. COUMADIN [Concomitant]
     Dosage: 2.5 MG, 1X/DAY
     Dates: start: 20070404
  17. LISINOPRIL [Concomitant]
     Dosage: 10 MG, 1X/DAY
  18. METOPROLOL SUCCINATE [Concomitant]
     Dosage: 25 MG, 2X/DAY
  19. NORVASC [Concomitant]
     Dosage: 5 MG, 1X/DAY
  20. MAGNESIUM OXIDE [Concomitant]
     Dosage: 400 MG, 1X/DAY
  21. INSULIN ASPARTATE [Concomitant]
  22. PHOSLO [Concomitant]
     Dosage: 667 MG, 3X/DAY
  23. SENNA [Concomitant]
  24. DARVOCET [Concomitant]
     Indication: PAIN
     Dosage: 1 TAB(S), AS REQ'D
     Route: 048
  25. EPOGEN [Concomitant]
     Dosage: 20000 UNITS
     Route: 058
  26. EPOGEN [Concomitant]
     Dosage: 30000UNITS X 6 WEEKS
     Route: 058
  27. IRON [Concomitant]
  28. ERGOCALCIFEROL [Concomitant]
     Indication: HYPOPARATHYROIDISM
     Dosage: 50000 UNITS
     Route: 048
     Dates: start: 20070331, end: 20070402
  29. AMBIEN [Concomitant]
     Dates: start: 20070328
  30. MAALOX                                  /USA/ [Concomitant]
     Dates: start: 20070327
  31. ARANESP [Concomitant]
     Dosage: 100 A?G, UNK
  32. FERRLECIT                               /USA/ [Concomitant]
     Dosage: UNK, UNK
     Dates: start: 20051203

REACTIONS (3)
  - EXCORIATION [None]
  - LOSS OF CONSCIOUSNESS [None]
  - NEPHROGENIC FIBROSING DERMOPATHY [None]
